FAERS Safety Report 11292241 (Version 2)
Quarter: 2015Q3

REPORT INFORMATION
  Report Type: Report from Study
  Country: US (occurrence: US)
  Receive Date: 20150722
  Receipt Date: 20150825
  Transmission Date: 20151125
  Serious: Yes (Hospitalization)
  Sender: FDA-Public Use
  Company Number: US-EISAI MEDICAL RESEARCH-EC-2015-007839

PATIENT
  Sex: Male

DRUGS (3)
  1. LENVIMA [Suspect]
     Active Substance: LENVATINIB
     Indication: THYROID CANCER
     Route: 048
     Dates: start: 20150605, end: 20150818
  2. METOPROLOL [Concomitant]
     Active Substance: METOPROLOL
  3. AMIODARONE [Concomitant]
     Active Substance: AMIODARONE

REACTIONS (7)
  - Blister [Unknown]
  - Dysphagia [Unknown]
  - Hypertension [Recovering/Resolving]
  - Hyperhidrosis [Recovering/Resolving]
  - Gait disturbance [Not Recovered/Not Resolved]
  - Dyspnoea [Not Recovered/Not Resolved]
  - Heart rate increased [Recovered/Resolved]

NARRATIVE: CASE EVENT DATE: 2015
